FAERS Safety Report 14595426 (Version 1)
Quarter: 2018Q1

REPORT INFORMATION
  Report Type: Spontaneous
  Country: IT (occurrence: IT)
  Receive Date: 20180302
  Receipt Date: 20180302
  Transmission Date: 20180509
  Serious: Yes (Death)
  Sender: FDA-Public Use
  Company Number: IT-TEVA-2018-IT-862688

PATIENT
  Sex: Male

DRUGS (2)
  1. FENTANYL. [Suspect]
     Active Substance: FENTANYL
     Indication: BREAKTHROUGH PAIN
     Dosage: 400 MICROGRAM DAILY;
     Route: 048
  2. MORFINA [Suspect]
     Active Substance: MORPHINE HYDROCHLORIDE
     Indication: BREAKTHROUGH PAIN
     Dosage: 80 MILLIGRAM DAILY;
     Route: 042

REACTIONS (2)
  - Sepsis [Fatal]
  - Lung disorder [Fatal]
